FAERS Safety Report 8257207-5 (Version None)
Quarter: 2012Q2

REPORT INFORMATION
  Report Type: 
  Country: None (occurrence: None)
  Receive Date: 20120403
  Receipt Date: 20120329
  Transmission Date: 20120825
  Serious: Yes (Hospitalization, Other)
  Sender: FDA-Public Use
  Company Number: DE-FRI-1000029535

PATIENT
  Age: 72 Year
  Sex: Female

DRUGS (6)
  1. DICLOFENAC SODIUM [Suspect]
     Dosage: 150 MG
  2. CITALOPRAM HYDROBROMIDE [Suspect]
     Dosage: 20 MG
     Route: 048
  3. ASPIRIN [Suspect]
     Dosage: 100 MG
  4. RAMIPRIL [Concomitant]
     Dosage: 5 MG
  5. HYDROCHLOROTHIAZIDE [Concomitant]
     Dosage: 25 MG
  6. ALENDRONIC ACID [Suspect]
     Dosage: 10 MG
     Route: 048

REACTIONS (2)
  - GASTRIC ULCER HAEMORRHAGE [None]
  - DRUG INTERACTION [None]
